FAERS Safety Report 25670444 (Version 1)
Quarter: 2025Q3

REPORT INFORMATION
  Report Type: Spontaneous
  Country: CH (occurrence: CH)
  Receive Date: 20250812
  Receipt Date: 20250812
  Transmission Date: 20251020
  Serious: Yes (Other)
  Sender: NOVARTIS
  Company Number: CH-002147023-NVSC2024CH179632

PATIENT
  Sex: Male

DRUGS (2)
  1. LEQVIO [Suspect]
     Active Substance: INCLISIRAN SODIUM
     Indication: Product used for unknown indication
     Route: 065
  2. ATORVASTATIN [Concomitant]
     Active Substance: ATORVASTATIN
     Indication: Product used for unknown indication
     Dosage: 80 MG, QD
     Route: 065

REACTIONS (4)
  - Papillary muscle rupture [Unknown]
  - Mitral valve incompetence [Unknown]
  - Hyperhidrosis [Not Recovered/Not Resolved]
  - Performance status decreased [Unknown]

NARRATIVE: CASE EVENT DATE: 20240101
